FAERS Safety Report 7249291-2 (Version None)
Quarter: 2011Q1

REPORT INFORMATION
  Report Type: 
  Country: None (occurrence: None)
  Receive Date: 20110128
  Receipt Date: 20101109
  Transmission Date: 20110831
  Serious: Yes (Hospitalization)
  Sender: FDA-Public Use
  Company Number: US-BAYER-201037969NA

PATIENT
  Sex: Female
  Weight: 74.83 kg

DRUGS (15)
  1. YASMIN [Suspect]
     Indication: PRODUCT USED FOR UNKNOWN INDICATION
     Dosage: UNK
     Dates: start: 20030101, end: 20040101
  2. ASPIRIN [Concomitant]
     Dosage: DAILY DOSE 81 MG
     Route: 048
     Dates: start: 20040209
  3. METOPROLOL SUCCINATE [Concomitant]
     Dosage: DAILY DOSE 25 MG
     Route: 048
     Dates: start: 20040210, end: 20040722
  4. PROZAC [Concomitant]
     Dosage: UNK
     Dates: start: 20040211
  5. DESYREL [Concomitant]
     Dosage: UNK
     Route: 048
     Dates: start: 20040211
  6. PHENERGAN [Concomitant]
     Dosage: UNK UNK, PRN
  7. TRAMADOL HCL [Concomitant]
     Dosage: UNK UNK, PRN
  8. YAZ [Suspect]
     Dosage: UNK
     Dates: start: 20030101, end: 20040101
  9. HYDROCHLOROTHIAZIDE [Concomitant]
     Indication: HYPERTENSION
     Dosage: UNK
     Dates: start: 20030101, end: 20070101
  10. LIPITOR [Concomitant]
     Dosage: UNK
     Route: 048
     Dates: start: 20040210, end: 20040722
  11. ALTACE [Concomitant]
     Dosage: UNK, QD
     Dates: start: 20100217
  12. ANAPROX [Concomitant]
     Dosage: UNK
     Dates: start: 20030212
  13. PROTONIX [Concomitant]
     Dosage: UNK UNK, QD
     Dates: start: 20040210
  14. OCELLA [Suspect]
     Dosage: UNK
     Dates: start: 20030101, end: 20040101
  15. ALTACE [Concomitant]
     Dosage: UNK
     Dates: start: 20040210, end: 20040722

REACTIONS (8)
  - ACUTE MYOCARDIAL INFARCTION [None]
  - ANXIETY [None]
  - MUSCULOSKELETAL DISCOMFORT [None]
  - COUGH [None]
  - CHEST PAIN [None]
  - HYPOMAGNESAEMIA [None]
  - ANGINA UNSTABLE [None]
  - DEPRESSION [None]
